FAERS Safety Report 9246245 (Version 2)
Quarter: 2013Q3

REPORT INFORMATION
  Report Type: Spontaneous
  Country: US (occurrence: US)
  Receive Date: 20130422
  Receipt Date: 20130725
  Transmission Date: 20140515
  Serious: Yes (Hospitalization, Other)
  Sender: FDA-Public Use
  Company Number: US-ABBOTT-13P-163-1076322-00

PATIENT
  Age: 74 Year
  Sex: Male
  Weight: 76.27 kg

DRUGS (5)
  1. LUPRON DEPOT [Suspect]
     Indication: PROSTATE CANCER
     Dates: start: 2006, end: 201006
  2. LUPRON DEPOT [Suspect]
     Dates: start: 201106
  3. PREDNISONE [Concomitant]
     Indication: SUPPLEMENTATION THERAPY
  4. PANTOPRAZOLE [Concomitant]
     Indication: GASTROOESOPHAGEAL REFLUX DISEASE
  5. METOPROLOL [Concomitant]
     Indication: HEART RATE IRREGULAR

REACTIONS (6)
  - Intestinal perforation [Recovered/Resolved]
  - Prostatic specific antigen increased [Not Recovered/Not Resolved]
  - Abdominal pain lower [Recovered/Resolved]
  - Neoplasm prostate [Unknown]
  - Anorectal discomfort [Recovered/Resolved]
  - Constipation [Recovered/Resolved]
